FAERS Safety Report 9176217 (Version 1)
Quarter: 2013Q1

REPORT INFORMATION
  Report Type: Spontaneous
  Country: BE (occurrence: BE)
  Receive Date: 20130321
  Receipt Date: 20130321
  Transmission Date: 20140127
  Serious: Yes (Hospitalization, Other)
  Sender: FDA-Public Use
  Company Number: BE-AMGEN-BELSP2013018006

PATIENT
  Age: 72 Year
  Sex: Female
  Weight: 85 kg

DRUGS (14)
  1. XGEVA [Suspect]
     Indication: METASTASES TO BONE
     Dosage: 120 MG, Q4WK
     Route: 058
     Dates: start: 20120615
  2. ZOMETA [Suspect]
     Indication: METASTASES TO BONE
     Dosage: 4 MG, EVERY 3 OR 4 WEEKS
     Route: 042
     Dates: start: 20120306, end: 20120615
  3. SIPRALEXA                          /01588501/ [Concomitant]
     Dosage: 10 MG, QD
     Route: 048
  4. FEMARA [Concomitant]
     Indication: BREAST CANCER
     Dosage: 5 MG, QD
     Route: 048
     Dates: start: 20120331
  5. OMEPRAZOLE [Concomitant]
     Dosage: 20 MG, QD
  6. ELTHYRONE [Concomitant]
     Indication: THYROIDECTOMY
     Dosage: 100 MUG, QD
     Route: 048
  7. DUROGESIC [Concomitant]
     Dosage: 62.5 MUG, ONCE EVERY 3 DAYS
     Route: 058
  8. XANAX [Concomitant]
     Indication: PRODUCT USED FOR UNKNOWN INDICATION
     Dosage: 0.25 MG, QD
     Route: 048
  9. MOTILIUM                           /00498201/ [Concomitant]
     Indication: PRODUCT USED FOR UNKNOWN INDICATION
     Dosage: 10 MG, TID
     Route: 048
  10. CLEXANE [Concomitant]
     Indication: PRODUCT USED FOR UNKNOWN INDICATION
     Dosage: 40 MG, QD
     Route: 058
  11. D-CURE [Concomitant]
     Indication: METASTASES TO BONE
     Dosage: UNK IU, QWK
     Route: 048
  12. D-CURE [Concomitant]
     Indication: BLOOD CALCIUM
  13. CALCIUM CARBONATE [Concomitant]
     Indication: METASTASES TO BONE
     Dosage: 1.25 G, QD
     Route: 048
  14. CALCIUM CARBONATE [Concomitant]
     Indication: BLOOD CALCIUM

REACTIONS (5)
  - Hypomagnesaemia [Unknown]
  - Hypokalaemia [Unknown]
  - Paraesthesia [Recovered/Resolved]
  - Hypocalcaemia [Unknown]
  - Blood albumin decreased [Unknown]
